FAERS Safety Report 4746069-6 (Version None)
Quarter: 2005Q3

REPORT INFORMATION
  Report Type: 
  Country: None (occurrence: None)
  Receive Date: 20050816
  Receipt Date: 20050606
  Transmission Date: 20060218
  Serious: Yes (Hospitalization)
  Sender: FDA-Public Use
  Company Number: FR-ROCHE-407023

PATIENT
  Age: 57 Year
  Sex: Male
  Weight: 66.7 kg

DRUGS (5)
  1. PEGASYS [Suspect]
     Indication: HEPATITIS C
     Route: 058
     Dates: start: 20030922, end: 20050516
  2. PEGASYS [Suspect]
     Route: 058
  3. COPEGUS [Suspect]
     Indication: HEPATITIS C
     Route: 065
     Dates: start: 20030922
  4. COPEGUS [Suspect]
     Dosage: REDUCED DOSAGE.
     Route: 065
     Dates: end: 20050505
  5. MANTADIX [Suspect]
     Indication: HEPATITIS C
     Route: 065
     Dates: start: 20030922, end: 20050505

REACTIONS (15)
  - ALPHA 2 GLOBULIN INCREASED [None]
  - ANGIOTENSIN CONVERTING ENZYME INCREASED [None]
  - CHILLS [None]
  - CHOLESTASIS [None]
  - COUGH [None]
  - DRUG INEFFECTIVE [None]
  - DYSLIPIDAEMIA [None]
  - GRANULOMA SKIN [None]
  - GRANULOMATOUS LIVER DISEASE [None]
  - HEPATIC FIBROSIS [None]
  - INJECTION SITE REACTION [None]
  - NIGHT SWEATS [None]
  - PYREXIA [None]
  - SARCOIDOSIS [None]
  - TUBERCULOSIS [None]
